FAERS Safety Report 7738654-4 (Version None)
Quarter: 2011Q3

REPORT INFORMATION
  Report Type: 
  Country: None (occurrence: None)
  Receive Date: 20110908
  Receipt Date: 20110907
  Transmission Date: 20111222
  Serious: Yes (Hospitalization, Disabling, Other)
  Sender: FDA-Public Use
  Company Number: US-MERCK-1107USA00032

PATIENT
  Age: 91 Year
  Sex: Male
  Weight: 73 kg

DRUGS (9)
  1. MEVACOR [Suspect]
     Route: 048
  2. CLOPIDOGREL [Concomitant]
     Indication: CORONARY ARTERY DISEASE
     Route: 065
  3. LISINOPRIL [Concomitant]
     Indication: DIABETES MELLITUS
     Route: 048
  4. GLIPIZIDE [Concomitant]
     Indication: DIABETES MELLITUS
     Route: 065
  5. DANAZOL [Suspect]
     Indication: IDIOPATHIC THROMBOCYTOPENIC PURPURA
     Route: 065
  6. ASPIRIN [Concomitant]
     Indication: CORONARY ARTERY DISEASE
     Route: 065
  7. METOPROLOL [Concomitant]
     Indication: HYPERTENSION
     Route: 065
  8. ISOSORBIDE DINITRATE [Concomitant]
     Route: 065
  9. LEVOTHYROXINE SODIUM [Concomitant]
     Route: 065

REACTIONS (5)
  - RHABDOMYOLYSIS [None]
  - MYALGIA [None]
  - DRUG INTERACTION [None]
  - FALL [None]
  - ASTHENIA [None]
